APPROVED DRUG PRODUCT: LOSARTAN POTASSIUM
Active Ingredient: LOSARTAN POTASSIUM
Strength: 50MG
Dosage Form/Route: TABLET;ORAL
Application: A200290 | Product #002
Applicant: IPCA LABORATORIES LTD
Approved: Aug 30, 2013 | RLD: No | RS: No | Type: DISCN